FAERS Safety Report 5254926-X (Version None)
Quarter: 2007Q1

REPORT INFORMATION
  Report Type: 
  Country: None (occurrence: None)
  Receive Date: 20070302
  Receipt Date: 20070302
  Transmission Date: 20070707
  Serious: No
  Sender: FDA-Public Use
  Company Number: None

PATIENT
  Age: 64 Year
  Sex: Female
  Weight: 90.7194 kg

DRUGS (1)
  1. CATAFLAM [Suspect]
     Indication: ARTHRITIS
     Dosage: DAILY
     Dates: start: 20060101, end: 20061001

REACTIONS (4)
  - GROIN PAIN [None]
  - MUSCLE INJURY [None]
  - MUSCLE SPASMS [None]
  - PAIN [None]
